FAERS Safety Report 13952051 (Version 1)
Quarter: 2017Q3

REPORT INFORMATION
  Report Type: Spontaneous
  Country: US (occurrence: US)
  Receive Date: 20170910
  Receipt Date: 20170910
  Transmission Date: 20171128
  Serious: No
  Sender: FDA-Public Use
  Company Number: US-BIOGEN-2017BI00454118

PATIENT
  Sex: Female

DRUGS (2)
  1. TECFIDERA [Suspect]
     Active Substance: DIMETHYL FUMARATE
     Indication: MULTIPLE SCLEROSIS
     Route: 065
     Dates: start: 20141112, end: 20141212
  2. TECFIDERA [Suspect]
     Active Substance: DIMETHYL FUMARATE
     Route: 065
     Dates: start: 20160301

REACTIONS (5)
  - Peripheral swelling [Unknown]
  - Erythema [Unknown]
  - Pain in extremity [Not Recovered/Not Resolved]
  - Upper limb fracture [Unknown]
  - Multiple sclerosis relapse [Not Recovered/Not Resolved]
